FAERS Safety Report 18376434 (Version 1)
Quarter: 2020Q4

REPORT INFORMATION
  Report Type: Spontaneous
  Country: US (occurrence: US)
  Receive Date: 20201012
  Receipt Date: 20201012
  Transmission Date: 20210114
  Serious: Yes (Other)
  Sender: FDA-Public Use
  Company Number: None

PATIENT
  Age: 60 Year
  Sex: Female

DRUGS (6)
  1. ENTYVIO [Suspect]
     Active Substance: VEDOLIZUMAB
     Indication: CROHN^S DISEASE
     Dates: start: 20200721, end: 20200930
  2. SYNTHROID [Concomitant]
     Active Substance: LEVOTHYROXINE SODIUM
  3. MULTI VITAMIN [Concomitant]
     Active Substance: VITAMINS
  4. D [Concomitant]
  5. CALCIUM [Concomitant]
     Active Substance: CALCIUM
  6. E [Concomitant]

REACTIONS (7)
  - Uveitis [None]
  - Anaemia [None]
  - Cough [None]
  - Product substitution issue [None]
  - Dyspnoea [None]
  - Rectal haemorrhage [None]
  - Product complaint [None]

NARRATIVE: CASE EVENT DATE: 20200801
